FAERS Safety Report 6169904-6 (Version None)
Quarter: 2009Q2

REPORT INFORMATION
  Report Type: 
  Country: None (occurrence: None)
  Receive Date: 20090428
  Receipt Date: 20090417
  Transmission Date: 20091009
  Serious: Yes (Hospitalization)
  Sender: FDA-Public Use
  Company Number: US-ELI_LILLY_AND_COMPANY-US200902000276

PATIENT
  Sex: Male
  Weight: 92.517 kg

DRUGS (11)
  1. BYETTA [Suspect]
     Dosage: 10 UG, DAILY (1/D)
  2. BYETTA [Suspect]
     Dosage: 5 UG, 3/D
     Dates: start: 20090202
  3. ISORBIDE [Concomitant]
     Indication: BLOOD PRESSURE INCREASED
  4. LIPITOR [Concomitant]
     Indication: BLOOD CHOLESTEROL INCREASED
  5. ASPIRIN [Concomitant]
  6. PLAVIX [Concomitant]
     Indication: CARDIAC DISORDER
  7. ACTOS                                   /AUS/ [Concomitant]
     Indication: TYPE 2 DIABETES MELLITUS
     Dates: start: 20090101
  8. METOPROLOL [Concomitant]
  9. GLIMEPIRIDE [Concomitant]
     Indication: TYPE 2 DIABETES MELLITUS
  10. TORSEMIDE [Concomitant]
  11. ANTI-DIABETICS [Concomitant]

REACTIONS (4)
  - ANGINA UNSTABLE [None]
  - MALAISE [None]
  - MYOCARDIAL INFARCTION [None]
  - RENAL IMPAIRMENT [None]
